FAERS Safety Report 25498478 (Version 1)
Quarter: 2025Q3

REPORT INFORMATION
  Report Type: Spontaneous
  Country: KZ (occurrence: KZ)
  Receive Date: 20250701
  Receipt Date: 20250701
  Transmission Date: 20251020
  Serious: Yes (Death)
  Sender: ROCHE
  Company Number: KZ-ROCHE-10000323590

PATIENT
  Age: 73 Year

DRUGS (1)
  1. TECENTRIQ [Suspect]
     Active Substance: ATEZOLIZUMAB
     Indication: Lung neoplasm malignant
     Route: 042
     Dates: start: 20240906, end: 202412

REACTIONS (3)
  - Mental disorder [Fatal]
  - Psychotic disorder [Unknown]
  - Insomnia [Unknown]
